FAERS Safety Report 4701388-4 (Version None)
Quarter: 2005Q2

REPORT INFORMATION
  Report Type: 
  Country: None (occurrence: None)
  Receive Date: 20050627
  Receipt Date: 20050616
  Transmission Date: 20051028
  Serious: Yes (Other)
  Sender: FDA-Public Use
  Company Number: VISP-NO-0506S-0341

PATIENT
  Age: 35 Year
  Sex: Female

DRUGS (2)
  1. VISIPAQUE [Suspect]
     Indication: ENDOMETRITIS
     Dosage: 90 ML, SINGLE DOSE, I.V.
     Route: 042
     Dates: start: 20050315, end: 20050315
  2. CLAVULIN (AUGMENTIN) [Concomitant]

REACTIONS (2)
  - FACIAL PARESIS [None]
  - HYPERSENSITIVITY [None]
